FAERS Safety Report 8196233-1 (Version None)
Quarter: 2012Q1

REPORT INFORMATION
  Report Type: 
  Country: None (occurrence: None)
  Receive Date: 20120309
  Receipt Date: 20120227
  Transmission Date: 20120608
  Serious: Yes (Other)
  Sender: FDA-Public Use
  Company Number: US-ACCORD-012622

PATIENT

DRUGS (1)
  1. CLONAZEPAM [Suspect]
     Dosage: NDC: 16729-138-00

REACTIONS (4)
  - NAUSEA [None]
  - DRUG INEFFECTIVE [None]
  - DIZZINESS [None]
  - THERAPEUTIC RESPONSE UNEXPECTED WITH DRUG SUBSTITUTION [None]
